FAERS Safety Report 4398410-4 (Version None)
Quarter: 2004Q3

REPORT INFORMATION
  Report Type: 
  Country: None (occurrence: None)
  Receive Date: 20040712
  Receipt Date: 20040629
  Transmission Date: 20050211
  Serious: Yes (Other)
  Sender: FDA-Public Use
  Company Number: 2004045169

PATIENT
  Sex: Male

DRUGS (2)
  1. RELPAX [Suspect]
     Indication: MIGRAINE
     Dosage: 40 MG (40 MG, PRN)
     Dates: end: 20040403
  2. METOPROLOL TARTRATE [Concomitant]

REACTIONS (7)
  - FALL [None]
  - HAEMATOMA [None]
  - ISCHAEMIA [None]
  - LOWER LIMB FRACTURE [None]
  - MIGRAINE [None]
  - PAIN IN EXTREMITY [None]
  - PERIPHERAL COLDNESS [None]
